FAERS Safety Report 6070768-X (Version None)
Quarter: 2009Q1

REPORT INFORMATION
  Report Type: 
  Country: None (occurrence: None)
  Receive Date: 20090209
  Receipt Date: 20090130
  Transmission Date: 20090719
  Serious: Yes (Death)
  Sender: FDA-Public Use
  Company Number: US-TYCO HEALTHCARE/MALLINCKRODT-T200900192

PATIENT
  Age: 33 Year
  Sex: Male

DRUGS (2)
  1. MORPHINE [Suspect]
     Route: 048
  2. METHADOSE [Suspect]
     Route: 048

REACTIONS (1)
  - CARDIO-RESPIRATORY ARREST [None]
